FAERS Safety Report 14952083 (Version 6)
Quarter: 2018Q4

REPORT INFORMATION
  Report Type: Spontaneous
  Country: FR (occurrence: FR)
  Receive Date: 20180530
  Receipt Date: 20181031
  Transmission Date: 20190204
  Serious: Yes (Other)
  Sender: FDA-Public Use
  Company Number: FR-MYLANLABS-2018M1034089

PATIENT
  Age: 38 Year
  Sex: Male
  Weight: 74 kg

DRUGS (3)
  1. FORMOTEROL [Suspect]
     Active Substance: FORMOTEROL
     Dosage: 1 DF, QD
     Route: 055
  2. FORMOTEROL [Suspect]
     Active Substance: FORMOTEROL
     Dosage: UNK
     Route: 065
  3. FORMOTEROL [Suspect]
     Active Substance: FORMOTEROL
     Indication: ASTHMA
     Dosage: 2 DF, QD, 1 DF, BID
     Route: 055

REACTIONS (5)
  - Wrong technique in product usage process [Unknown]
  - Foreign body aspiration [Unknown]
  - Drug tolerance [Unknown]
  - Drug dependence [Unknown]
  - Throat irritation [Unknown]

NARRATIVE: CASE EVENT DATE: 20171120
